FAERS Safety Report 15860265 (Version 2)
Quarter: 2019Q1

REPORT INFORMATION
  Report Type: Report from Study
  Country: GB (occurrence: GB)
  Receive Date: 20190123
  Receipt Date: 20190218
  Transmission Date: 20190417
  Serious: Yes (Hospitalization)
  Sender: FDA-Public Use
  Company Number: GB-ALEXION PHARMACEUTICALS INC.-A201900567

PATIENT
  Age: 3 Year
  Sex: Male

DRUGS (79)
  1. KANUMA [Suspect]
     Active Substance: SEBELIPASE ALFA
     Dosage: UNK, QW
     Route: 058
     Dates: start: 20150520
  2. PARACETAMOL [Concomitant]
     Active Substance: ACETAMINOPHEN
     Indication: PAIN
     Dosage: 90 MG, QID
     Route: 048
  3. PARACETAMOL [Concomitant]
     Active Substance: ACETAMINOPHEN
     Indication: BODY TEMPERATURE INCREASED
     Dosage: 125 MG, QD
     Route: 048
  4. PARACETAMOL [Concomitant]
     Active Substance: ACETAMINOPHEN
     Dosage: 80 MG, QID
     Route: 048
  5. DOMPERIDONE [Concomitant]
     Active Substance: DOMPERIDONE
     Dosage: 2 MG, TID
     Route: 048
  6. VITAMIN E                          /00110501/ [Concomitant]
     Active Substance: TOCOPHEROL
     Dosage: 200 MG, QD
     Route: 048
  7. OMEPRAZOLE. [Concomitant]
     Active Substance: OMEPRAZOLE
     Indication: ANTACID THERAPY
     Dosage: 7 MG, QD
     Route: 048
  8. OMEPRAZOLE. [Concomitant]
     Active Substance: OMEPRAZOLE
     Indication: PROPHYLAXIS
     Dosage: 10 MG, QD
     Route: 048
  9. ALFA-TOCOPHEROL ACETATE [Concomitant]
     Dosage: 200 MG, QD
     Route: 048
  10. DIORALYTE                          /00386201/ [Concomitant]
     Active Substance: DEXTROSE\POTASSIUM CHLORIDE\SODIUM BICARBONATE\SODIUM CHLORIDE
     Indication: DIARRHOEA
     Dosage: 1 SACHET, QID
     Route: 048
  11. LOPERAMIDE [Concomitant]
     Active Substance: LOPERAMIDE
     Indication: DIARRHOEA
     Dosage: 1.5 MG, QD
     Route: 050
  12. ONDANSETRON [Concomitant]
     Active Substance: ONDANSETRON
     Indication: PROCEDURAL NAUSEA
     Dosage: 1.5 MG, SINGLE
     Route: 042
  13. BENZYLPENICILLIN [Concomitant]
     Active Substance: PENICILLIN G
     Dosage: 200 MG, BID
     Route: 048
  14. OMEPRAZOLE. [Concomitant]
     Active Substance: OMEPRAZOLE
     Dosage: 3.5 MG, QD
     Route: 048
  15. HEPSAL [Concomitant]
     Active Substance: HEPARIN SODIUM
     Indication: CATHETER MANAGEMENT
     Dosage: 5 ML, SINGLE
     Route: 042
  16. TEICOPLANIN [Concomitant]
     Active Substance: TEICOPLANIN
     Indication: VASCULAR DEVICE INFECTION
     Dosage: 48 MG, QD
     Route: 042
  17. CHOLECALCIFEROL [Concomitant]
     Active Substance: CHOLECALCIFEROL
     Indication: VITAMIN D DEFICIENCY
     Dosage: 40000 IU, QW
     Route: 048
  18. TREOSULFAN [Concomitant]
     Active Substance: TREOSULFAN
     Indication: CHEMOTHERAPY
     Dosage: 7800 MG, QD
     Route: 042
  19. ITRACONAZOLE. [Concomitant]
     Active Substance: ITRACONAZOLE
     Indication: PRODUCT USED FOR UNKNOWN INDICATION
     Dosage: 75 MG, QD
     Route: 050
  20. SODIUM CHLORIDE. [Concomitant]
     Active Substance: SODIUM CHLORIDE
     Indication: VEHICLE SOLUTION USE
     Dosage: 1 DROP, TID EACH NOSTRIL
     Route: 045
  21. TEICOPLANIN [Concomitant]
     Active Substance: TEICOPLANIN
     Indication: ANTIBIOTIC THERAPY
     Dosage: 80 MG, BID
     Route: 042
  22. CEFTRIAXONE. [Concomitant]
     Active Substance: CEFTRIAXONE
     Indication: ANTIBIOTIC THERAPY
     Dosage: 445 MG, QD
     Route: 042
  23. ACYCLOVIR                          /00587301/ [Concomitant]
     Active Substance: ACYCLOVIR
     Indication: ANTIVIRAL PROPHYLAXIS
     Dosage: 200 MG, QID
     Route: 048
  24. PHENOXYMETHYLPENICILLIN [Concomitant]
     Active Substance: PENICILLIN V
     Indication: PROPHYLAXIS
     Dosage: 125 MG, BID
     Route: 048
  25. ERGOCALCIFEROL. [Concomitant]
     Active Substance: ERGOCALCIFEROL
     Indication: HYPOVITAMINOSIS
     Dosage: 6000 IU, QD
     Route: 048
  26. SALBUTAMOL                         /00139502/ [Concomitant]
     Active Substance: ALBUTEROL SULFATE
     Indication: COUGH
     Dosage: 2-6 PUFFS, PRN
     Route: 055
  27. TAMIFLU [Concomitant]
     Active Substance: OSELTAMIVIR PHOSPHATE
     Indication: ANTIVIRAL PROPHYLAXIS
     Dosage: 45 MG, QD
     Route: 048
  28. BENZYLPENICILLIN [Concomitant]
     Active Substance: PENICILLIN G
     Indication: TONSILLITIS
     Dosage: 210 MG, QID
     Route: 042
  29. AMLODIPINE [Concomitant]
     Active Substance: AMLODIPINE BESYLATE
     Dosage: 3.4 MG, QD
     Route: 048
  30. TEICOPLANIN [Concomitant]
     Active Substance: TEICOPLANIN
     Dosage: 170 MG, BID
     Route: 042
  31. AMIKACIN. [Concomitant]
     Active Substance: AMIKACIN
     Indication: ANTIBIOTIC THERAPY
     Dosage: 320 MG, QD
     Route: 042
  32. CLENIL                             /00212602/ [Concomitant]
     Active Substance: BECLOMETHASONE DIPROPIONATE
     Indication: COUGH
     Dosage: 2 PUFFS, BID
     Route: 055
  33. FUROSEMIDE. [Concomitant]
     Active Substance: FUROSEMIDE
     Indication: OEDEMA
     Dosage: 10 MG, BID
     Route: 048
  34. FLUDARABINE [Concomitant]
     Active Substance: FLUDARABINE PHOSPHATE
     Indication: CHEMOTHERAPY
     Dosage: 26 MG, QD
     Route: 042
  35. INFACOL                            /00820801/ [Concomitant]
     Indication: FLATULENCE
     Dosage: 1 DROP, BEFORE MEALS
     Route: 048
  36. TAZOCIN [Concomitant]
     Active Substance: PIPERACILLIN SODIUM\TAZOBACTAM SODIUM
     Indication: VASCULAR DEVICE INFECTION
     Dosage: UNK
     Route: 042
  37. PARACETAMOL [Concomitant]
     Active Substance: ACETAMINOPHEN
     Dosage: 180 MG, Q4H-Q6H
     Route: 048
  38. CO-AMOXICLAV                       /00756801/ [Concomitant]
     Active Substance: AMOXICILLIN\CLAVULANIC ACID
     Dosage: 360 MG, TID
     Route: 042
  39. BENZYLPENICILLIN [Concomitant]
     Active Substance: PENICILLIN G
     Indication: PROPHYLAXIS
     Dosage: 220 MG, QID
     Route: 042
  40. TEICOPLANIN [Concomitant]
     Active Substance: TEICOPLANIN
     Dosage: 103 MG, BID
     Route: 042
  41. KETOVITE                           /00660901/ [Concomitant]
     Indication: VITAMIN A DEFICIENCY
     Dosage: 10 ML, QD
     Route: 048
  42. PRIVIGEN [Concomitant]
     Active Substance: HUMAN IMMUNOGLOBULIN G
     Dosage: 7.5 MG, SINGLE
     Route: 042
  43. BECLOMETHASONE                     /00212602/ [Concomitant]
     Active Substance: BECLOMETHASONE
     Indication: STEROID THERAPY
     Dosage: 2 SPRAYS, BID
     Route: 045
  44. COTRIMOXAZOLE [Concomitant]
     Active Substance: SULFAMETHOXAZOLE\TRIMETHOPRIM
     Indication: PROPHYLAXIS
     Dosage: 240 MG, BID
     Route: 048
  45. FUROSEMIDE. [Concomitant]
     Active Substance: FUROSEMIDE
     Indication: HYPERTENSION
     Dosage: 7.5 MG, QD
     Route: 042
  46. KANUMA [Suspect]
     Active Substance: SEBELIPASE ALFA
     Indication: LYSOSOMAL ACID LIPASE DEFICIENCY
     Dosage: 1 MG/KG, QW
     Route: 058
     Dates: start: 20150512, end: 20150512
  47. FLUCLOXACILLIN [Concomitant]
     Active Substance: FLUCLOXACILLIN
     Indication: ANTIBIOTIC THERAPY
     Dosage: 125 MG, QID
     Route: 048
  48. RANITIDINE. [Concomitant]
     Active Substance: RANITIDINE
     Indication: GASTROOESOPHAGEAL REFLUX DISEASE
     Dosage: 7.5 MG, BID
     Route: 048
  49. SYTRON [Concomitant]
     Dosage: 2.5 ML, BID
     Route: 048
  50. PRIVIGEN [Concomitant]
     Active Substance: HUMAN IMMUNOGLOBULIN G
     Indication: IMMUNOGLOBULIN THERAPY
     Dosage: 5 G, QD
     Route: 042
  51. PHENOXYMETHYLPENICILLIN [Concomitant]
     Active Substance: PENICILLIN V
     Dosage: 125 MG, QID
     Route: 048
  52. FUROSEMIDE. [Concomitant]
     Active Substance: FUROSEMIDE
     Dosage: 15 MG, BID
     Route: 048
  53. HYOSCINE BUTYLBROMIDE [Concomitant]
     Active Substance: BUTYLSCOPOLAMINE
     Indication: PRODUCT USED FOR UNKNOWN INDICATION
     Dosage: 5 MG, TID
     Route: 050
  54. VITAMIN E                          /00110501/ [Concomitant]
     Active Substance: TOCOPHEROL
     Indication: VITAMIN SUPPLEMENTATION
     Dosage: 10 MG, QD
     Route: 048
  55. AMLODIPINE [Concomitant]
     Active Substance: AMLODIPINE BESYLATE
     Indication: HYPERTENSION
     Dosage: 2.8 MG, QD
     Route: 048
  56. AMLODIPINE [Concomitant]
     Active Substance: AMLODIPINE BESYLATE
     Dosage: 5 MG, QD
     Route: 048
  57. SYTRON [Concomitant]
     Indication: IRON DEFICIENCY
     Dosage: 1 ML, QD
     Route: 048
  58. SYTRON [Concomitant]
     Indication: ANAEMIA
     Dosage: 2.5 ML, BID
     Route: 048
  59. ALFA-TOCOPHEROL ACETATE [Concomitant]
     Dosage: 200 MG, QID
     Route: 048
  60. MEROPENEM. [Concomitant]
     Active Substance: MEROPENEM
     Indication: ANTIBIOTIC THERAPY
     Dosage: 320 MG, TID
     Route: 042
  61. SODIUM BICARBONATE. [Concomitant]
     Active Substance: SODIUM BICARBONATE
     Indication: PRODUCT USED FOR UNKNOWN INDICATION
     Dosage: 6 MMOL, QD
     Route: 050
  62. ABIDEC [Concomitant]
     Indication: VITAMIN SUPPLEMENTATION
     Dosage: 0.6 ML, QD
     Route: 048
  63. LISINOPRIL. [Concomitant]
     Active Substance: LISINOPRIL
     Indication: NEPHROTIC SYNDROME
     Dosage: 2 MG, QD
     Route: 048
  64. BORTEZOMIB. [Concomitant]
     Active Substance: BORTEZOMIB
     Indication: PRODUCT USED FOR UNKNOWN INDICATION
     Dosage: UNK
     Route: 065
     Dates: end: 20181102
  65. PARACETAMOL [Concomitant]
     Active Substance: ACETAMINOPHEN
     Indication: PREMEDICATION
     Dosage: 120 MG, Q4H QW
     Route: 048
  66. PARACETAMOL [Concomitant]
     Active Substance: ACETAMINOPHEN
     Dosage: 140 MG, Q4H-Q6H
     Route: 048
  67. IBUPROFEN. [Concomitant]
     Active Substance: IBUPROFEN
     Indication: ANTIINFLAMMATORY THERAPY
     Dosage: 30 MG, TID
     Route: 050
  68. FLUCLOXACILLIN [Concomitant]
     Active Substance: FLUCLOXACILLIN
     Dosage: 220 MG, QID
     Route: 042
  69. CO-AMOXICLAV                       /00756801/ [Concomitant]
     Active Substance: AMOXICILLIN\CLAVULANIC ACID
     Indication: ANTIBIOTIC THERAPY
     Dosage: 1.5 ML, TID
     Route: 048
  70. DOMPERIDONE [Concomitant]
     Active Substance: DOMPERIDONE
     Indication: GASTROOESOPHAGEAL REFLUX DISEASE
     Dosage: 3.6 MG, TID
     Route: 048
  71. BENZYLPENICILLIN [Concomitant]
     Active Substance: PENICILLIN G
     Indication: ANTIBIOTIC THERAPY
     Dosage: 300 MG, QID
     Route: 042
  72. TEICOPLANIN [Concomitant]
     Active Substance: TEICOPLANIN
     Dosage: 90 MG, BID
     Route: 042
  73. ALFA-TOCOPHEROL ACETATE [Concomitant]
     Indication: VITAMIN E DEFICIENCY
     Dosage: 200 MG, QD
     Route: 048
  74. KETOVITE                           /00660901/ [Concomitant]
     Dosage: 15 ML, QD
     Route: 048
  75. PREDNISOLONE. [Concomitant]
     Active Substance: PREDNISOLONE
     Indication: STEROID THERAPY
     Dosage: 40 MG, QD
     Route: 048
  76. CHLORPHENAMINE [Concomitant]
     Active Substance: CHLORPHENIRAMINE MALEATE
     Indication: PREMEDICATION
     Dosage: 2.5 MG, QW
     Route: 042
  77. HYDROCORTISONE. [Concomitant]
     Active Substance: HYDROCORTISONE
     Indication: PREMEDICATION
     Dosage: 50 MG, QW
     Route: 042
  78. AMPHOTERICIN [Concomitant]
     Active Substance: AMPHOTERICIN B
     Indication: PRODUCT USED FOR UNKNOWN INDICATION
     Dosage: 3 MG/KG, QD
     Route: 042
  79. THIOTEPA. [Concomitant]
     Active Substance: THIOTEPA
     Indication: CHEMOTHERAPY
     Dosage: 5 MG/KG, BID
     Route: 042

REACTIONS (3)
  - Respiratory syncytial virus test positive [Recovering/Resolving]
  - Pyrexia [Recovered/Resolved]
  - Rhinovirus infection [Recovering/Resolving]

NARRATIVE: CASE EVENT DATE: 20181031
